FAERS Safety Report 14709700 (Version 1)
Quarter: 2018Q2

REPORT INFORMATION
  Report Type: Spontaneous
  Country: US (occurrence: US)
  Receive Date: 20180403
  Receipt Date: 20180403
  Transmission Date: 20180711
  Serious: Yes (Other)
  Sender: FDA-Public Use
  Company Number: US-SA-2018SA094653

PATIENT
  Age: 86 Year
  Sex: Male

DRUGS (1)
  1. LANTUS [Suspect]
     Active Substance: INSULIN GLARGINE
     Indication: TYPE 2 DIABETES MELLITUS
     Dosage: DOSE STRENGTH- 20 UNITS IN THE DAYTIME AND 10 UNITS NIGHTLY
     Route: 051
     Dates: start: 2014

REACTIONS (4)
  - Localised infection [Unknown]
  - Blood glucose fluctuation [Unknown]
  - Cerebrovascular accident [Unknown]
  - Product use issue [Unknown]

NARRATIVE: CASE EVENT DATE: 2014
